FAERS Safety Report 7802088-4 (Version None)
Quarter: 2011Q4

REPORT INFORMATION
  Report Type: 
  Country: None (occurrence: None)
  Receive Date: 20111005
  Receipt Date: 20110916
  Transmission Date: 20120403
  Serious: Yes (Other)
  Sender: FDA-Public Use
  Company Number: BR-ACCORD-010731

PATIENT
  Age: 51 Year
  Sex: Female

DRUGS (10)
  1. ENOXAPARIN SODIUM [Concomitant]
  2. GEMCITABINE [Suspect]
     Indication: PRODUCT USED FOR UNKNOWN INDICATION
     Dosage: 1340.00-MG/INTRAVENOUS (NOT OTHERWISE SPECIFIED)
     Route: 042
     Dates: start: 20110131
  3. METACLOPRAMIDE (METACLOPRAMIDE) [Concomitant]
  4. DIPYRONE INJ [Concomitant]
  5. FUROSEMIDE [Concomitant]
  6. DEXAMETHASONE [Concomitant]
  7. BROMOPRIDE(BROMOPRIDE) [Concomitant]
  8. OMEPRAZOLE [Concomitant]
  9. LOPERAMIDE [Concomitant]
  10. CIPROFLOXACIN HYDROCHLORIDE [Concomitant]

REACTIONS (10)
  - PYREXIA [None]
  - MYALGIA [None]
  - PHLEBITIS [None]
  - ARTHRALGIA [None]
  - DYSGEUSIA [None]
  - NAUSEA [None]
  - DIARRHOEA [None]
  - DIZZINESS [None]
  - FATIGUE [None]
  - PLEURAL EFFUSION [None]
